FAERS Safety Report 9156046 (Version 1)
Quarter: 2013Q1

REPORT INFORMATION
  Report Type: Report from Study
  Country: CN (occurrence: CN)
  Receive Date: 20130311
  Receipt Date: 20130311
  Transmission Date: 20140127
  Serious: Yes (Other)
  Sender: FDA-Public Use
  Company Number: CN-B.I. PHARMACEUTICALS,INC./RIDGEFIELD-2013-BI-05840GD

PATIENT
  Sex: 0

DRUGS (2)
  1. MICARDIS [Suspect]
     Indication: HYPERTENSION
     Dosage: STARTED AT 80 MG
  2. MICARDIS [Suspect]
     Indication: ATRIAL FIBRILLATION

REACTIONS (2)
  - Cerebral infarction [Unknown]
  - Dizziness [Unknown]
